FAERS Safety Report 12242126 (Version 1)
Quarter: 2016Q2

REPORT INFORMATION
  Report Type: Spontaneous
  Country: US (occurrence: US)
  Receive Date: 20160406
  Receipt Date: 20160406
  Transmission Date: 20160815
  Serious: No
  Sender: FDA-Public Use
  Company Number: US-009507513-1603USA013953

PATIENT
  Sex: Female

DRUGS (1)
  1. DULERA [Suspect]
     Active Substance: FORMOTEROL FUMARATE DIHYDRATE\MOMETASONE FUROATE
     Indication: CONTRACEPTION
     Dosage: 200/5 MCR, UNK
     Route: 055

REACTIONS (5)
  - No adverse event [Unknown]
  - Product use issue [Unknown]
  - Device malfunction [None]
  - Product container issue [Unknown]
  - Circumstance or information capable of leading to medication error [Unknown]
